FAERS Safety Report 22590356 (Version 1)
Quarter: 2023Q2

REPORT INFORMATION
  Report Type: Spontaneous
  Country: US (occurrence: None)
  Receive Date: 20230609
  Receipt Date: 20230609
  Transmission Date: 20230722
  Serious: No
  Sender: FDA-Public Use
  Company Number: None

PATIENT
  Sex: Female

DRUGS (7)
  1. IBRANCE [Suspect]
     Active Substance: PALBOCICLIB
     Indication: Metastases to bone
     Dosage: 1T QD PO D1-21  Q 28D? ?
     Route: 048
  2. FULVESTRANT [Suspect]
     Active Substance: FULVESTRANT
     Dosage: 10ML QMONTH IM?
     Route: 030
  3. VITAMINS [Concomitant]
     Active Substance: VITAMINS
  4. SEROQUEL [Concomitant]
     Active Substance: QUETIAPINE FUMARATE
  5. GABAPENTIN [Concomitant]
     Active Substance: GABAPENTIN
  6. TRAZODONE [Concomitant]
     Active Substance: TRAZODONE HYDROCHLORIDE
  7. OXBUTYNIN [Concomitant]

REACTIONS (2)
  - White blood cell count decreased [None]
  - Therapy interrupted [None]
